FAERS Safety Report 11930387 (Version 1)
Quarter: 2016Q1

REPORT INFORMATION
  Report Type: Spontaneous
  Country: US (occurrence: US)
  Receive Date: 20160120
  Receipt Date: 20160120
  Transmission Date: 20160526
  Serious: No
  Sender: FDA-Public Use
  Company Number: US-BAYER-2016-011495

PATIENT
  Age: 7 Year
  Sex: Female

DRUGS (1)
  1. MIRALAX [Suspect]
     Active Substance: POLYETHYLENE GLYCOL 3350
     Dosage: 1/2 DOSE QD
     Route: 048

REACTIONS (3)
  - Off label use [None]
  - Product use issue [None]
  - Circumstance or information capable of leading to medication error [None]
